FAERS Safety Report 20708300 (Version 1)
Quarter: 2022Q2

REPORT INFORMATION
  Report Type: Spontaneous
  Country: GB (occurrence: GB)
  Receive Date: 20220414
  Receipt Date: 20220414
  Transmission Date: 20220721
  Serious: Yes (Death, Other)
  Sender: FDA-Public Use
  Company Number: GB-AMGEN-GBRSP2022060974

PATIENT

DRUGS (20)
  1. ADALIMUMAB [Suspect]
     Active Substance: ADALIMUMAB
     Indication: Combined immunodeficiency
     Dosage: UNK
     Route: 065
  2. ADALIMUMAB [Suspect]
     Active Substance: ADALIMUMAB
     Indication: Off label use
  3. FILGRASTIM [Suspect]
     Active Substance: FILGRASTIM
     Indication: Neutropenia
     Route: 065
  4. FILGRASTIM [Suspect]
     Active Substance: FILGRASTIM
     Indication: Off label use
  5. ETANERCEPT [Suspect]
     Active Substance: ETANERCEPT
     Indication: Combined immunodeficiency
     Dosage: UNK
     Route: 065
  6. ETANERCEPT [Suspect]
     Active Substance: ETANERCEPT
     Indication: Off label use
  7. AZITHROMYCIN [Concomitant]
     Active Substance: AZITHROMYCIN
  8. COLCHICINE [Concomitant]
     Active Substance: COLCHICINE
  9. CYCLOPHOSPHAMIDE [Concomitant]
     Active Substance: CYCLOPHOSPHAMIDE
  10. MYCOPHENOLATE MOFETIL [Concomitant]
     Active Substance: MYCOPHENOLATE MOFETIL
  11. METHOTREXATE [Concomitant]
     Active Substance: METHOTREXATE
  12. AZATHIOPRINE [Concomitant]
     Active Substance: AZATHIOPRINE
  13. ASPIRIN [Concomitant]
     Active Substance: ASPIRIN
  14. HUMAN IMMUNOGLOBULIN G [Concomitant]
     Active Substance: HUMAN IMMUNOGLOBULIN G
  15. RITUXIMAB [Concomitant]
     Active Substance: RITUXIMAB
  16. ANAKINRA [Concomitant]
     Active Substance: ANAKINRA
  17. TOCILIZUMAB [Concomitant]
     Active Substance: TOCILIZUMAB
  18. SIROLIMUS [Concomitant]
     Active Substance: SIROLIMUS
  19. ADALIMUMAB [Concomitant]
     Active Substance: ADALIMUMAB
  20. INFLIXIMAB [Concomitant]
     Active Substance: INFLIXIMAB

REACTIONS (15)
  - Sepsis [Fatal]
  - Intestinal perforation [Fatal]
  - Bone marrow failure [Unknown]
  - Extremity necrosis [Unknown]
  - Vasculitic ulcer [Unknown]
  - Colitis ischaemic [Unknown]
  - Cranial nerve paralysis [Recovered/Resolved]
  - Neutropenic infection [Recovered/Resolved]
  - Drug effective for unapproved indication [Unknown]
  - Therapy partial responder [Unknown]
  - Treatment noncompliance [Unknown]
  - Off label use [Unknown]
  - Peripheral coldness [Unknown]
  - Paraesthesia [Unknown]
  - Pyrexia [Unknown]
